FAERS Safety Report 21639244 (Version 1)
Quarter: 2022Q4

REPORT INFORMATION
  Report Type: Report from Study
  Country: CA (occurrence: CA)
  Receive Date: 20221124
  Receipt Date: 20221124
  Transmission Date: 20230113
  Serious: Yes (Other)
  Sender: FDA-Public Use
  Company Number: CA-JNJFOC-20221100343

PATIENT
  Age: 70 Year
  Sex: Female

DRUGS (2)
  1. STELARA [Suspect]
     Active Substance: USTEKINUMAB
     Indication: Crohn^s disease
     Dosage: THE PATIENT ALSO RECEIVED DOSE ON 05-OCT-2022.
     Route: 058
     Dates: start: 20210127
  2. STELARA [Suspect]
     Active Substance: USTEKINUMAB

REACTIONS (2)
  - COVID-19 pneumonia [Recovered/Resolved]
  - Post viral fatigue syndrome [Not Recovered/Not Resolved]

NARRATIVE: CASE EVENT DATE: 20221020
